FAERS Safety Report 9125453 (Version 2)
Quarter: 2013Q2

REPORT INFORMATION
  Report Type: Spontaneous
  Country: US (occurrence: US)
  Receive Date: 20130117
  Receipt Date: 20130423
  Transmission Date: 20140414
  Serious: Yes (Hospitalization)
  Sender: FDA-Public Use
  Company Number: US-BRISTOL-MYERS SQUIBB COMPANY-17165853

PATIENT
  Sex: Male

DRUGS (2)
  1. YERVOY [Suspect]
     Indication: METASTATIC MALIGNANT MELANOMA
     Dosage: 3 MG/KG=237 MG; NO OF INF 4; 20-SEP-2012, 11-OCT-2012 AND 01-NOV-2012
     Route: 042
     Dates: start: 20120828
  2. TEMODAR [Concomitant]
     Dates: start: 201211

REACTIONS (2)
  - Intestinal perforation [Unknown]
  - Colitis [Unknown]
